FAERS Safety Report 6882283-1 (Version None)
Quarter: 2010Q3

REPORT INFORMATION
  Report Type: 
  Country: None (occurrence: None)
  Receive Date: 20100702
  Receipt Date: 20090501
  Transmission Date: 20110219
  Serious: Yes (Other)
  Sender: FDA-Public Use
  Company Number: 2009207578

PATIENT
  Age: 32 Year
  Sex: Male
  Weight: 103.4 kg

DRUGS (5)
  1. ZOLOFT [Suspect]
     Indication: DEPRESSION
  2. CHANTIX [Suspect]
     Dosage: 0.5 MG, 1X/DAY, ORAL
     Route: 048
     Dates: start: 20090427
  3. WELLBUTRIN [Suspect]
     Indication: DEPRESSION
     Dosage: 0.5 MG
     Dates: start: 20090101, end: 20090101
  4. NAPROSYN [Concomitant]
  5. VICODIN [Concomitant]

REACTIONS (10)
  - AGITATION [None]
  - ANXIETY [None]
  - CHILLS [None]
  - DEPRESSION [None]
  - FATIGUE [None]
  - HEADACHE [None]
  - HYPERHIDROSIS [None]
  - INSOMNIA [None]
  - LOSS OF LIBIDO [None]
  - STRESS [None]
